FAERS Safety Report 20784475 (Version 2)
Quarter: 2022Q2

REPORT INFORMATION
  Report Type: Report from Study
  Country: US (occurrence: US)
  Receive Date: 20220504
  Receipt Date: 20220613
  Transmission Date: 20220721
  Serious: Yes (Other)
  Sender: FDA-Public Use
  Company Number: US-JAZZ-2022-US-008418

PATIENT
  Age: 81 Year
  Sex: Male

DRUGS (22)
  1. XYREM [Suspect]
     Active Substance: SODIUM OXYBATE
     Indication: Narcolepsy
     Dosage: 2.25 GRAM, BID
     Route: 048
     Dates: start: 200606, end: 200612
  2. XYREM [Suspect]
     Active Substance: SODIUM OXYBATE
     Indication: Cataplexy
     Dosage: DOSE ADJUSTMENT
     Route: 048
     Dates: start: 200612, end: 201411
  3. XYREM [Suspect]
     Active Substance: SODIUM OXYBATE
     Indication: Somnolence
     Dosage: TAKE 3G BY MOUTH DILUTED IN 60ML OF WATER AT BEDTIME AND TAKE 4.5G 2+1/2 TO 4 HOURS LATER
     Route: 048
     Dates: start: 201411
  4. LIPITOR [Concomitant]
     Active Substance: ATORVASTATIN CALCIUM
     Dosage: UNK
     Dates: start: 20150922
  5. LEVOTHYROXINE [Concomitant]
     Active Substance: LEVOTHYROXINE
     Dosage: 1 TABLET MORNING, EMPTY STOMACH
     Route: 048
     Dates: start: 20150922
  6. OCUVITE [ASCORBIC ACID;BETACAROTENE;COPPER;TOCOFERSOLAN;ZINC] [Concomitant]
     Dosage: UNK
     Dates: start: 20151005
  7. DOCUSATE SODIUM [Concomitant]
     Active Substance: DOCUSATE SODIUM
     Dosage: AS NEEDED
     Route: 048
     Dates: start: 20151005
  8. VITAMIN D3 [Concomitant]
     Active Substance: CHOLECALCIFEROL
     Dosage: UNK
     Route: 048
     Dates: start: 20151005
  9. ALCOHOL [Concomitant]
     Active Substance: ALCOHOL
     Dosage: UNK
     Dates: start: 20151005
  10. CELECOXIB [Concomitant]
     Active Substance: CELECOXIB
     Dosage: UNK
     Dates: start: 20180723
  11. BUPROPION HYDROCHLORIDE XL [Concomitant]
     Active Substance: BUPROPION HYDROCHLORIDE
     Dosage: ONE TABLET2, EVERY MORNING
     Route: 048
     Dates: start: 20210813
  12. BUPROPION HYDROCHLORIDE XL [Concomitant]
     Active Substance: BUPROPION HYDROCHLORIDE
     Dosage: 300 MILLIGRAM, OD
     Route: 048
     Dates: start: 20220419
  13. ATORVASTATIN CALCIUM [Concomitant]
     Active Substance: ATORVASTATIN CALCIUM
     Dosage: EVERY DAY
     Route: 048
  14. CITALOPRAM HYDROCHLORIDE [Concomitant]
     Active Substance: CITALOPRAM HYDROCHLORIDE
     Dosage: ONE TABLET
     Route: 048
  15. FIBER [Concomitant]
     Active Substance: PSYLLIUM HUSK
     Route: 048
  16. FUROSEMIDE [Concomitant]
     Active Substance: FUROSEMIDE
     Dosage: ONCE A DAY
     Route: 048
  17. VITAMINS NOS [Concomitant]
     Active Substance: VITAMINS
     Dosage: ONCE A DAY
     Route: 048
  18. POTASSIUM CHLORIDE [Concomitant]
     Active Substance: POTASSIUM CHLORIDE
     Route: 048
  19. PREVAGEN [APOAEQUORIN] [Concomitant]
     Dosage: UNK
     Route: 048
  20. MEDICAL FOOD [Concomitant]
     Active Substance: MEDICAL FOOD
     Dosage: UNK, BID
     Route: 048
  21. XARELTO [Concomitant]
     Active Substance: RIVAROXABAN
     Dosage: TAKE ONE TABLET WITH FOOD ONCE A DAY AFTER THE 21 DAYS OF STARTING DOSE 30
     Route: 048
  22. MELATONIN [Concomitant]
     Active Substance: MELATONIN
     Dosage: 0000
     Dates: start: 20220415

REACTIONS (4)
  - Deep vein thrombosis [Unknown]
  - Foot operation [Unknown]
  - Fatigue [Unknown]
  - Product administration interrupted [Unknown]

NARRATIVE: CASE EVENT DATE: 20210701
